FAERS Safety Report 17716033 (Version 6)
Quarter: 2020Q2

REPORT INFORMATION
  Report Type: Report from Study
  Country: None (occurrence: DE)
  Receive Date: 20200428
  Receipt Date: 20200624
  Transmission Date: 20200714
  Serious: Yes (Hospitalization)
  Sender: FDA-Public Use
  Company Number: DE-ABBVIE-20K-062-3376257-00

PATIENT
  Age: 69 Year
  Sex: Female
  Weight: 80 kg

DRUGS (24)
  1. CLOZAPIN [Concomitant]
     Active Substance: CLOZAPINE
     Indication: PRODUCT USED FOR UNKNOWN INDICATION
  2. PREGABALIN. [Concomitant]
     Active Substance: PREGABALIN
     Indication: PRODUCT USED FOR UNKNOWN INDICATION
  3. VITAMIN D [Concomitant]
     Active Substance: VITAMIN D NOS
     Indication: PRODUCT USED FOR UNKNOWN INDICATION
  4. LIDOCAIN [Concomitant]
     Active Substance: LIDOCAINE
     Indication: PRODUCT USED FOR UNKNOWN INDICATION
  5. CEFTRIAXON [Concomitant]
     Active Substance: CEFTRIAXONE
     Indication: PRODUCT USED FOR UNKNOWN INDICATION
  6. INHIXA [Concomitant]
     Active Substance: ENOXAPARIN SODIUM
     Indication: PRODUCT USED FOR UNKNOWN INDICATION
  7. SIMVASTATIN. [Concomitant]
     Active Substance: SIMVASTATIN
     Indication: PRODUCT USED FOR UNKNOWN INDICATION
  8. FERRO SANOL [Concomitant]
     Active Substance: FERROUS GLYCINE SULFATE
     Indication: PRODUCT USED FOR UNKNOWN INDICATION
  9. TORASEMID [Concomitant]
     Active Substance: TORSEMIDE
     Indication: PRODUCT USED FOR UNKNOWN INDICATION
  10. BETMIGA [Concomitant]
     Active Substance: MIRABEGRON
     Indication: PRODUCT USED FOR UNKNOWN INDICATION
  11. PROPOFOL. [Concomitant]
     Active Substance: PROPOFOL
     Indication: PRODUCT USED FOR UNKNOWN INDICATION
  12. MACROGOL [Concomitant]
     Active Substance: POLYETHYLENE GLYCOLS
     Indication: PRODUCT USED FOR UNKNOWN INDICATION
  13. DREISAFER [Concomitant]
     Indication: PRODUCT USED FOR UNKNOWN INDICATION
  14. MONO-EMBOLEX [Concomitant]
     Active Substance: CERTOPARIN SODIUM
     Indication: PRODUCT USED FOR UNKNOWN INDICATION
  15. DUODOPA [Suspect]
     Active Substance: CARBIDOPA\LEVODOPA
     Indication: PARKINSON^S DISEASE
     Dosage: MD 6ML CRD 2ML/H ED 0.7ML LEVO CARBI-1-WATER 2000MG/100ML+500MG/100 MG GEL
     Route: 050
     Dates: start: 20191023
  16. AMOXICILLIN TRIHYDRATE [Concomitant]
     Active Substance: AMOXICILLIN
     Indication: PRODUCT USED FOR UNKNOWN INDICATION
  17. PANTOPRAZOL [Concomitant]
     Active Substance: PANTOPRAZOLE SODIUM
     Indication: PRODUCT USED FOR UNKNOWN INDICATION
  18. DUODOPA [Suspect]
     Active Substance: CARBIDOPA\LEVODOPA
     Dosage: 2.0 ML/H
     Route: 050
  19. METOPROLOL. [Concomitant]
     Active Substance: METOPROLOL
     Indication: PRODUCT USED FOR UNKNOWN INDICATION
  20. MADOPAR DEPOT [Concomitant]
     Active Substance: BENSERAZIDE HYDROCHLORIDE\LEVODOPA
     Indication: PRODUCT USED FOR UNKNOWN INDICATION
  21. COLECALCIFEROL [Concomitant]
     Active Substance: CHOLECALCIFEROL
     Indication: PRODUCT USED FOR UNKNOWN INDICATION
  22. PREGABALIN. [Concomitant]
     Active Substance: PREGABALIN
     Indication: PRODUCT USED FOR UNKNOWN INDICATION
  23. DUODOPA [Suspect]
     Active Substance: CARBIDOPA\LEVODOPA
     Dosage: MD 6 ML / CRD 2,2 ML/H / ED 0,7 ML
     Route: 050
  24. COLECALCIFEROL [Concomitant]
     Active Substance: CHOLECALCIFEROL
     Indication: PRODUCT USED FOR UNKNOWN INDICATION

REACTIONS (49)
  - Fall [Recovering/Resolving]
  - Akinesia [Not Recovered/Not Resolved]
  - Haemoglobin decreased [Recovered/Resolved]
  - Homans^ sign negative [Unknown]
  - Reduced facial expression [Unknown]
  - Loss of libido [Unknown]
  - Dysarthria [Unknown]
  - Adjustment disorder with depressed mood [Unknown]
  - Sensation of foreign body [Unknown]
  - Posture abnormal [Unknown]
  - Arthralgia [Unknown]
  - Hypokinesia [Not Recovered/Not Resolved]
  - Haematocrit decreased [Recovered/Resolved]
  - Humerus fracture [Recovered/Resolved]
  - Rhinorrhoea [Recovered/Resolved]
  - Dysdiadochokinesis [Unknown]
  - Muscular weakness [Unknown]
  - Oropharyngeal pain [Unknown]
  - COVID-19 [Recovered/Resolved]
  - Gamma-glutamyltransferase increased [Unknown]
  - Sleep disorder [Unknown]
  - Muscle spasms [Not Recovered/Not Resolved]
  - Dysuria [Unknown]
  - Hypokinesia [Unknown]
  - Dysphagia [Recovered/Resolved]
  - Depressed mood [Unknown]
  - Ocular hyperaemia [Unknown]
  - Upper limb fracture [Recovered/Resolved]
  - Immature granulocyte count increased [Recovered/Resolved]
  - Tremor [Unknown]
  - Helplessness [Unknown]
  - Decreased activity [Unknown]
  - Joint range of motion decreased [Unknown]
  - Urinary tract infection [Unknown]
  - C-reactive protein increased [Recovered/Resolved]
  - Blood creatinine decreased [Recovered/Resolved]
  - Laboratory test abnormal [Unknown]
  - Humerus fracture [Unknown]
  - Fibrin D dimer increased [Unknown]
  - On and off phenomenon [Unknown]
  - Hospitalisation [Not Recovered/Not Resolved]
  - Red blood cell count decreased [Unknown]
  - Blood albumin decreased [Unknown]
  - Dysuria [Recovered/Resolved]
  - Pain [Unknown]
  - Listless [Unknown]
  - Blood glucose increased [Unknown]
  - Fear [Unknown]
  - Eye pain [Unknown]

NARRATIVE: CASE EVENT DATE: 2019
